FAERS Safety Report 9764312 (Version 2)
Quarter: 2013Q4

REPORT INFORMATION
  Report Type: Spontaneous
  Country: KR (occurrence: KR)
  Receive Date: 20131217
  Receipt Date: 20131217
  Transmission Date: 20140711
  Serious: No
  Sender: FDA-Public Use
  Company Number: 2012SP000063

PATIENT
  Age: 8 Year
  Sex: Male
  Weight: 25 kg

DRUGS (2)
  1. VANCOMYCIN [Suspect]
     Indication: STAPHYLOCOCCAL INFECTION
     Route: 042
  2. AMOXICILLIN TRIHYDRATE W/CLAVULANTE POTASSIUM [Suspect]
     Indication: THYROIDITIS SUBACUTE

REACTIONS (1)
  - Drug ineffective [Unknown]
